FAERS Safety Report 10349566 (Version 1)
Quarter: 2014Q3

REPORT INFORMATION
  Report Type: Spontaneous
  Country: US (occurrence: None)
  Receive Date: 20140728
  Receipt Date: 20140728
  Transmission Date: 20150326
  Serious: Yes (Other)
  Sender: FDA-Public Use
  Company Number: None

PATIENT
  Age: 72 Year
  Sex: Female
  Weight: 69.4 kg

DRUGS (1)
  1. LOVASTATIN. [Suspect]
     Active Substance: LOVASTATIN
     Indication: BLOOD CHOLESTEROL INCREASED
     Dosage: 2 PILLS ONCE DAILY TAKEN BY MOUTH
     Route: 048
     Dates: start: 20140612, end: 20140723

REACTIONS (4)
  - Product quality issue [None]
  - Reaction to drug excipients [None]
  - Urticaria [None]
  - Product substitution issue [None]

NARRATIVE: CASE EVENT DATE: 20140722
